FAERS Safety Report 8353924-7 (Version None)
Quarter: 2012Q2

REPORT INFORMATION
  Report Type: 
  Country: None (occurrence: None)
  Receive Date: 20120511
  Receipt Date: 20120504
  Transmission Date: 20120825
  Serious: Yes (Other)
  Sender: FDA-Public Use
  Company Number: US-BAYER-2012-044230

PATIENT
  Sex: Female

DRUGS (2)
  1. BEYAZ [Suspect]
     Indication: PREMENSTRUAL SYNDROME
  2. BEYAZ [Suspect]
     Indication: MENSTRUAL CYCLE MANAGEMENT

REACTIONS (1)
  - VAGINAL HAEMORRHAGE [None]
